FAERS Safety Report 20109142 (Version 1)
Quarter: 2021Q4

REPORT INFORMATION
  Report Type: Spontaneous
  Country: ES (occurrence: ES)
  Receive Date: 20211124
  Receipt Date: 20211124
  Transmission Date: 20220303
  Serious: Yes (Other)
  Sender: FDA-Public Use
  Company Number: ES-EUSA PHARMA (UK) LIMITED-2021ES000641

PATIENT

DRUGS (1)
  1. SYLVANT [Suspect]
     Active Substance: SILTUXIMAB
     Indication: Castleman^s disease
     Dosage: UNK
     Route: 065
     Dates: start: 20171017

REACTIONS (5)
  - Propionibacterium infection [Unknown]
  - Staphylococcal infection [Unknown]
  - Lung abscess [Unknown]
  - Pulmonary mass [Unknown]
  - Laboratory test abnormal [Unknown]

NARRATIVE: CASE EVENT DATE: 20180129
